FAERS Safety Report 7803064-8 (Version None)
Quarter: 2011Q4

REPORT INFORMATION
  Report Type: 
  Country: None (occurrence: None)
  Receive Date: 20111007
  Receipt Date: 20110923
  Transmission Date: 20120403
  Serious: No
  Sender: FDA-Public Use
  Company Number: US-B.I. PHARMACEUTICALS,INC./RIDGEFIELD-2011-BP-22863BP

PATIENT
  Sex: Female

DRUGS (1)
  1. MICARDIS [Suspect]
     Route: 048
     Dates: start: 20110701

REACTIONS (4)
  - DIARRHOEA [None]
  - HEADACHE [None]
  - DIZZINESS [None]
  - LETHARGY [None]
